FAERS Safety Report 9041145 (Version 1)
Quarter: 2013Q1

REPORT INFORMATION
  Report Type: Spontaneous
  Country: US (occurrence: None)
  Receive Date: 20130124
  Receipt Date: 20130124
  Transmission Date: 20140127
  Serious: No
  Sender: FDA-Public Use
  Company Number: None

PATIENT
  Age: 63 Year
  Sex: Female
  Weight: 78.02 kg

DRUGS (1)
  1. TIMOLOL MALEATE (PF) OPHT .5% [Suspect]
     Indication: GLAUCOMA
     Dosage: 0.5 %  1 DROP  EYE
     Dates: start: 201211, end: 201301

REACTIONS (3)
  - Ocular hyperaemia [None]
  - Impaired driving ability [None]
  - Photophobia [None]
